FAERS Safety Report 4636150-4 (Version None)
Quarter: 2005Q2

REPORT INFORMATION
  Report Type: 
  Country: None (occurrence: None)
  Receive Date: 20050414
  Receipt Date: 20050414
  Transmission Date: 20051028
  Serious: Yes (Hospitalization)
  Sender: FDA-Public Use
  Company Number: None

PATIENT
  Age: 52 Year
  Sex: Male
  Weight: 71.2147 kg

DRUGS (3)
  1. TAXOL [Suspect]
     Indication: OESOPHAGEAL CARCINOMA
     Dosage: 50 MG/M2 IV 3/31 + 4/11
     Route: 042
     Dates: start: 20050331
  2. TAXOL [Suspect]
     Indication: OESOPHAGEAL CARCINOMA
     Dosage: 50 MG/M2 IV 3/31 + 4/11
     Route: 042
     Dates: start: 20050411
  3. CETUXIMAB [Suspect]
     Dosage: 400 MG/M2
     Dates: start: 20050331

REACTIONS (2)
  - ANAPHYLACTIC REACTION [None]
  - DERMATITIS ACNEIFORM [None]
